FAERS Safety Report 11045403 (Version 1)
Quarter: 2015Q2

REPORT INFORMATION
  Report Type: Report from Study
  Country: PL (occurrence: PL)
  Receive Date: 20150417
  Receipt Date: 20150417
  Transmission Date: 20150821
  Serious: Yes (Hospitalization, Other)
  Sender: FDA-Public Use
  Company Number: PL-ASTRAZENECA-2015SE33736

PATIENT
  Age: 25374 Day
  Sex: Female

DRUGS (7)
  1. ROSUVASTATINUM [Concomitant]
     Indication: HYPERCHOLESTEROLAEMIA
     Dosage: 20 MG, DOSE-1, INTERVAL-1
  2. TICAGRELOR [Suspect]
     Active Substance: TICAGRELOR
     Indication: THROMBOSIS PROPHYLAXIS
     Route: 048
     Dates: start: 20141022
  3. RAMIPRILUM [Concomitant]
     Indication: CORONARY ARTERY DISEASE
     Dosage: 05 MG, DOSE-1, INTERVAL-1
  4. BIVALIRUDIN [Suspect]
     Active Substance: BIVALIRUDIN
     Indication: THROMBOSIS PROPHYLAXIS
     Dosage: 2.5 MG/KG MILLIGRAM(S)/KILOGRAM DOSAGE(S)=1 INTERVAL= 1 TOTAL(S)
     Route: 042
     Dates: start: 20141022, end: 20141022
  5. ACETYLSALICYLIC ACID [Suspect]
     Active Substance: ASPIRIN
     Indication: THROMBOSIS PROPHYLAXIS
     Dosage: PRIOR TO INDEX PROCEDURE (NON-AZ PRODUCT)
     Route: 048
     Dates: start: 20120418
  6. PANTOPRAZOLUM [Concomitant]
     Indication: PROPHYLAXIS
     Dosage: 20 MG, DOSE-1, INTERVAL-1
     Dates: start: 20140304
  7. BISOPROLOLI FUMARAS [Concomitant]
     Indication: CORONARY ARTERY DISEASE
     Dosage: 05 MG, DOSE-1, INTERVAL-1

REACTIONS (1)
  - Femoral artery aneurysm [Unknown]

NARRATIVE: CASE EVENT DATE: 20141107
